FAERS Safety Report 19372379 (Version 1)
Quarter: 2021Q2

REPORT INFORMATION
  Report Type: Report from Study
  Country: None (occurrence: PR)
  Receive Date: 20210604
  Receipt Date: 20210604
  Transmission Date: 20210717
  Serious: Yes (Other)
  Sender: FDA-Public Use
  Company Number: PR-ABBVIE-21K-131-3931661-00

PATIENT
  Age: 70 Year
  Sex: Male

DRUGS (2)
  1. HUMULIN 70/30 [Concomitant]
     Active Substance: INSULIN HUMAN
     Indication: DIABETES MELLITUS
     Dosage: 40 UNIT AM / 40 UNIT PM STARTED MORE THAN 20 YEARS
     Route: 058
  2. HUMIRA [Suspect]
     Active Substance: ADALIMUMAB
     Indication: PSORIASIS
     Route: 058
     Dates: start: 20210216

REACTIONS (1)
  - Pterygium [Recovered/Resolved]

NARRATIVE: CASE EVENT DATE: 2021
